FAERS Safety Report 18258293 (Version 1)
Quarter: 2020Q3

REPORT INFORMATION
  Report Type: Spontaneous
  Country: AU (occurrence: AU)
  Receive Date: 20200911
  Receipt Date: 20200911
  Transmission Date: 20201103
  Serious: Yes (Other)
  Sender: FDA-Public Use
  Company Number: AU-BAYER-2020-185323

PATIENT
  Sex: Female

DRUGS (1)
  1. MIRENA [Suspect]
     Active Substance: LEVONORGESTREL
     Dosage: 20 ?G PER DAY CONTINUOUSLY
     Route: 015
     Dates: start: 2017, end: 20200901

REACTIONS (9)
  - Device breakage [None]
  - Genital haemorrhage [None]
  - Discomfort [None]
  - Procedural haemorrhage [Recovered/Resolved]
  - Hormone level abnormal [None]
  - Embedded device [None]
  - Device expulsion [None]
  - Device difficult to use [None]
  - Complication of device removal [None]

NARRATIVE: CASE EVENT DATE: 20200901
